FAERS Safety Report 4687313-3 (Version None)
Quarter: 2005Q2

REPORT INFORMATION
  Report Type: 
  Country: None (occurrence: None)
  Receive Date: 20050608
  Receipt Date: 20050526
  Transmission Date: 20051028
  Serious: Yes (Hospitalization, Other)
  Sender: FDA-Public Use
  Company Number: 2005080640

PATIENT
  Age: 86 Year
  Sex: Male

DRUGS (8)
  1. CELEBREX [Suspect]
     Indication: OSTEOARTHRITIS
     Dosage: 200 MG (200 MG, 1 IN 1 D), ORAL
     Route: 048
     Dates: start: 20030101
  2. FLUTAMIDE (FLUTAMIDE0 [Concomitant]
  3. ALL OTHER THERAPEUTIC PRODUCTS (ALL OTHER THERAPEUTIC PRODUCTS) [Concomitant]
  4. ISOSORBIDE MONONITRATE [Concomitant]
  5. METOPROLOL TARTRATE [Concomitant]
  6. FLUOCINONIDE [Concomitant]
  7. GLYCERYL TRINITRATE (GLYCERYL TRINITRATE) [Concomitant]
  8. ASPIRIN [Concomitant]

REACTIONS (8)
  - BACK PAIN [None]
  - BODY HEIGHT DECREASED [None]
  - FALL [None]
  - HIP FRACTURE [None]
  - OSTEOPOROSIS [None]
  - SLEEP DISORDER [None]
  - URINARY INCONTINENCE [None]
  - WRIST FRACTURE [None]
